FAERS Safety Report 4440635-3 (Version None)
Quarter: 2004Q3

REPORT INFORMATION
  Report Type: 
  Country: None (occurrence: None)
  Receive Date: 20040901
  Receipt Date: 20040901
  Transmission Date: 20050211
  Serious: Yes (Hospitalization)
  Sender: FDA-Public Use
  Company Number: None

PATIENT
  Sex: Female
  Weight: 61.6892 kg

DRUGS (4)
  1. DARVOCET-N 100 [Suspect]
     Indication: PAIN
     Dosage: PO [PRIOR TO ADMISSION]
     Route: 048
  2. PREVACID [Concomitant]
  3. LIBRAX [Concomitant]
  4. DONNATAL [Concomitant]

REACTIONS (6)
  - ABDOMINAL PAIN [None]
  - CHEST DISCOMFORT [None]
  - DYSPEPSIA [None]
  - LIVER FUNCTION TEST ABNORMAL [None]
  - PYREXIA [None]
  - VOMITING [None]
